FAERS Safety Report 18239273 (Version 1)
Quarter: 2020Q3

REPORT INFORMATION
  Report Type: Report from Study
  Country: BR (occurrence: BR)
  Receive Date: 20200907
  Receipt Date: 20200907
  Transmission Date: 20201103
  Serious: Yes (Other)
  Sender: FDA-Public Use
  Company Number: NVSC2020BR244467

PATIENT

DRUGS (1)
  1. ENTRESTO [Suspect]
     Active Substance: SACUBITRIL\VALSARTAN
     Indication: PRODUCT USED FOR UNKNOWN INDICATION
     Dosage: 24.26 MG, UNKNOWN
     Route: 065
     Dates: start: 2020

REACTIONS (4)
  - Crying [Unknown]
  - Hypoacusis [Unknown]
  - Cognitive disorder [Unknown]
  - Nervousness [Unknown]
